FAERS Safety Report 5370418-1 (Version None)
Quarter: 2007Q2

REPORT INFORMATION
  Report Type: 
  Country: None (occurrence: None)
  Receive Date: 20070626
  Receipt Date: 20070626
  Transmission Date: 20071010
  Serious: Yes (Life-Threatening, Hospitalization)
  Sender: FDA-Public Use
  Company Number: None

PATIENT
  Sex: Male
  Weight: 129 kg

DRUGS (3)
  1. MORPHINE SULFATE [Suspect]
     Indication: PAIN
     Dosage: 2MG QS PRN (IVP)
     Route: 042
     Dates: start: 20060925, end: 20060927
  2. OXYCODONE HCL [Suspect]
     Indication: PAIN
     Dosage: 10MG Q6H (PO)
     Route: 048
     Dates: start: 20060925, end: 20060927
  3. VICODIN [Concomitant]

REACTIONS (3)
  - LOSS OF CONSCIOUSNESS [None]
  - RESPIRATORY ARREST [None]
  - SKIN DISCOLOURATION [None]
